FAERS Safety Report 7235410-0 (Version None)
Quarter: 2011Q1

REPORT INFORMATION
  Report Type: 
  Country: None (occurrence: None)
  Receive Date: 20110110
  Receipt Date: 20110103
  Transmission Date: 20110831
  Serious: Yes (Hospitalization)
  Sender: FDA-Public Use
  Company Number: 024712

PATIENT
  Sex: Male

DRUGS (6)
  1. CONTRAMAL (CONTRAMAL LP) (NOT SPECIFIED) [Suspect]
     Dosage: (100 MG BID ORAL)
     Route: 048
     Dates: start: 20101024, end: 20101210
  2. AUGMENTIN '125' [Suspect]
     Dosage: (1 G TID ORAL)
     Route: 048
     Dates: start: 20101104, end: 20101117
  3. URBANYL (URBANYL) (NOT SPECIFIED) [Suspect]
     Dosage: (5 G TID ORAL), (5 MG BID ORAL), (5 MG QD ORAL)
     Route: 048
     Dates: start: 20101021, end: 20101104
  4. URBANYL (URBANYL) (NOT SPECIFIED) [Suspect]
     Dosage: (5 G TID ORAL), (5 MG BID ORAL), (5 MG QD ORAL)
     Route: 048
     Dates: start: 20101105, end: 20101115
  5. URBANYL (URBANYL) (NOT SPECIFIED) [Suspect]
     Dosage: (5 G TID ORAL), (5 MG BID ORAL), (5 MG QD ORAL)
     Route: 048
     Dates: start: 20101116, end: 20101125
  6. KEPPRA [Suspect]
     Dosage: (250 MG BID ORAL)
     Route: 048
     Dates: start: 20101026, end: 20101116

REACTIONS (3)
  - EOSINOPHILIA [None]
  - BLOOD IMMUNOGLOBULIN E INCREASED [None]
  - HEPATITIS CHOLESTATIC [None]
